FAERS Safety Report 4783951-8 (Version None)
Quarter: 2005Q3

REPORT INFORMATION
  Report Type: 
  Country: None (occurrence: None)
  Receive Date: 20050927
  Receipt Date: 20050728
  Transmission Date: 20060218
  Serious: No
  Sender: FDA-Public Use
  Company Number: USA0507104149

PATIENT
  Age: 44 Year
  Sex: Female
  Weight: 97 kg

DRUGS (2)
  1. STRATTERA [Suspect]
     Indication: ATTENTION DEFICIT/HYPERACTIVITY DISORDER
     Dosage: 40 MG IN THE MORNING
     Dates: start: 20050727
  2. LORTAB [Concomitant]

REACTIONS (5)
  - DECREASED APPETITE [None]
  - ENERGY INCREASED [None]
  - FATIGUE [None]
  - HYPERHIDROSIS [None]
  - SOMNOLENCE [None]
